FAERS Safety Report 22307662 (Version 1)
Quarter: 2023Q2

REPORT INFORMATION
  Report Type: Spontaneous
  Country: US (occurrence: None)
  Receive Date: 20230511
  Receipt Date: 20230511
  Transmission Date: 20230721
  Serious: No
  Sender: FDA-Public Use
  Company Number: US-ROCHE-3170580

PATIENT
  Age: 27 Year
  Sex: Female

DRUGS (1)
  1. OCREVUS [Suspect]
     Active Substance: OCRELIZUMAB
     Indication: Relapsing multiple sclerosis
     Dosage: 300MG IV INFUSION OVER 4 HOURS ;ONGOING: YES
     Route: 042
     Dates: start: 20220826

REACTIONS (2)
  - Fatigue [Recovering/Resolving]
  - Brain fog [Recovering/Resolving]

NARRATIVE: CASE EVENT DATE: 20220826
